FAERS Safety Report 8215465-7 (Version None)
Quarter: 2012Q1

REPORT INFORMATION
  Report Type: 
  Country: None (occurrence: None)
  Receive Date: 20120316
  Receipt Date: 20120314
  Transmission Date: 20120608
  Serious: Yes (Other)
  Sender: FDA-Public Use
  Company Number: US-ROCHE-1026282

PATIENT
  Sex: Male

DRUGS (1)
  1. ZELBORAF [Suspect]
     Indication: PRODUCT USED FOR UNKNOWN INDICATION
     Route: 065

REACTIONS (10)
  - FATIGUE [None]
  - ALOPECIA [None]
  - SKIN MASS [None]
  - ERYTHEMA [None]
  - MYALGIA [None]
  - ARTHRALGIA [None]
  - CONSTIPATION [None]
  - ASTHENOPIA [None]
  - VOMITING [None]
  - SUNBURN [None]
